FAERS Safety Report 16849735 (Version 1)
Quarter: 2019Q3

REPORT INFORMATION
  Report Type: Spontaneous
  Country: US (occurrence: US)
  Receive Date: 20190803
  Receipt Date: 20190803
  Transmission Date: 20191005
  Serious: No
  Sender: FDA-Public Use
  Company Number: None

PATIENT
  Sex: Female

DRUGS (1)
  1. HUMIRA [Suspect]
     Active Substance: ADALIMUMAB
     Indication: SPONDYLOLISTHESIS
     Dosage: ?          OTHER FREQUENCY:Q 14D;?
     Route: 058
     Dates: start: 20190522

REACTIONS (2)
  - Rash erythematous [None]
  - Visual impairment [None]
